FAERS Safety Report 7429865-6 (Version None)
Quarter: 2011Q2

REPORT INFORMATION
  Report Type: 
  Country: None (occurrence: None)
  Receive Date: 20110421
  Receipt Date: 20110401
  Transmission Date: 20111010
  Serious: Yes (Other)
  Sender: FDA-Public Use
  Company Number: IT-BRISTOL-MYERS SQUIBB COMPANY-15653330

PATIENT
  Age: 6 Decade

DRUGS (1)
  1. ABATACEPT [Suspect]
     Indication: RHEUMATOID ARTHRITIS
     Dates: start: 20100101

REACTIONS (1)
  - KNEE ARTHROPLASTY [None]
